FAERS Safety Report 13313642 (Version 1)
Quarter: 2017Q1

REPORT INFORMATION
  Report Type: Spontaneous
  Country: US (occurrence: US)
  Receive Date: 20170309
  Receipt Date: 20170309
  Transmission Date: 20170428
  Serious: Yes (Other)
  Sender: FDA-Public Use
  Company Number: US-PFIZER INC-2017101298

PATIENT
  Age: 9 Month
  Sex: Male
  Weight: 9.4 kg

DRUGS (3)
  1. CHLOROPROCAINE HYDROCHLORIDE. [Suspect]
     Active Substance: CHLOROPROCAINE HYDROCHLORIDE
     Dosage: 7 ML, UNK (OVER 40 SECS)
     Route: 040
  2. ROPIVACAINE [Concomitant]
     Active Substance: ROPIVACAINE
     Dosage: 0.2 ML/KG/HR
  3. CHLOROPROCAINE HYDROCHLORIDE. [Suspect]
     Active Substance: CHLOROPROCAINE HYDROCHLORIDE
     Dosage: 2 ML, UNK
     Route: 040

REACTIONS (4)
  - Altered state of consciousness [Recovered/Resolved]
  - Tonic clonic movements [Recovered/Resolved]
  - Toxicity to various agents [Unknown]
  - Oxygen saturation decreased [Recovered/Resolved]
